FAERS Safety Report 5753831-X (Version None)
Quarter: 2008Q2

REPORT INFORMATION
  Report Type: 
  Country: None (occurrence: None)
  Receive Date: 20080527
  Receipt Date: 20080527
  Transmission Date: 20081010
  Serious: Yes (Congenital Anomaly)
  Sender: FDA-Public Use
  Company Number: None

PATIENT
  Sex: Male
  Weight: 4.536 kg

DRUGS (1)
  1. TERBUTALINE SULFATE [Suspect]
     Indication: PREMATURE LABOUR
     Dosage: DAILY PO
     Route: 048
     Dates: start: 19990520, end: 19990717

REACTIONS (7)
  - ABNORMAL BEHAVIOUR [None]
  - AUTISM [None]
  - BACK DISORDER [None]
  - ILL-DEFINED DISORDER [None]
  - LARGE FOR DATES BABY [None]
  - MATERNAL DRUGS AFFECTING FOETUS [None]
  - NEONATAL DISORDER [None]
